FAERS Safety Report 8116478-6 (Version None)
Quarter: 2012Q1

REPORT INFORMATION
  Report Type: 
  Country: None (occurrence: None)
  Receive Date: 20120206
  Receipt Date: 20120130
  Transmission Date: 20120608
  Serious: Yes (Other)
  Sender: FDA-Public Use
  Company Number: BR-ABBOTT-12P-020-0900133-00

PATIENT
  Sex: Female
  Weight: 72 kg

DRUGS (6)
  1. HUMIRA [Suspect]
  2. MORTIN [Concomitant]
     Indication: RHEUMATOID ARTHRITIS
     Dosage: 1 TABLET AT LUNCH AND 1 AT NIGHT
     Route: 048
  3. FOLIC ACID [Concomitant]
     Indication: RHEUMATOID ARTHRITIS
     Dosage: WEEKLY ON TUESDAYS
     Route: 048
  4. HUMIRA [Suspect]
     Indication: RHEUMATOID ARTHRITIS
     Route: 058
     Dates: start: 20091005, end: 20111101
  5. METICORTEN [Concomitant]
     Indication: RHEUMATOID ARTHRITIS
     Route: 048
  6. METHOTREXATE [Concomitant]
     Indication: RHEUMATOID ARTHRITIS
     Dosage: WEEKLY ON MONDAYS
     Route: 048

REACTIONS (3)
  - FLOATING PATELLA [None]
  - LIGAMENT INJURY [None]
  - PAIN [None]
